FAERS Safety Report 26204170 (Version 1)
Quarter: 2025Q4

REPORT INFORMATION
  Report Type: Report from Study
  Country: US (occurrence: US)
  Receive Date: 20251226
  Receipt Date: 20251226
  Transmission Date: 20260118
  Serious: Yes (Other)
  Sender: ABBVIE
  Company Number: US-ABBVIE-6605541

PATIENT
  Age: 43 Year
  Sex: Female

DRUGS (1)
  1. HUMIRA [Suspect]
     Active Substance: ADALIMUMAB
     Indication: Product used for unknown indication
     Route: 058
     Dates: start: 20210901

REACTIONS (8)
  - Jaw operation [Unknown]
  - Skin infection [Not Recovered/Not Resolved]
  - Skin exfoliation [Not Recovered/Not Resolved]
  - Skin haemorrhage [Unknown]
  - Post procedural infection [Unknown]
  - Debridement [Unknown]
  - Symptom recurrence [Not Recovered/Not Resolved]
  - Medical device removal [Unknown]

NARRATIVE: CASE EVENT DATE: 20231101
